FAERS Safety Report 7249634 (Version 2)
Quarter: 2013Q4

REPORT INFORMATION
  Report Type: Spontaneous
  Country: US (occurrence: None)
  Receive Date: 20091231
  Receipt Date: 20131120
  Transmission Date: 20140711
  Serious: Yes (Other)
  Sender: FDA-Public Use
  Company Number: 2009S1009080

PATIENT
  Age: 64 Year
  Sex: Male

DRUGS (6)
  1. SODIUM PHOSPHATE, DIBASIC\SODIUM PHOSPHATE, MONOBASIC, ANHYDROUS [Suspect]
     Indication: COLONOSCOPY
     Dosage: 45 ML;PO
     Route: 048
     Dates: start: 20071009
  2. CRESTOR (ROSUVASTATIN CALCIUM) (10 MILLIGRAM ) [Concomitant]
  3. DIOVAN (VALSARTAN) [Concomitant]
  4. BENICAR HCT (HYDROCHLOROTHIAZIDE, OLMESARTAN MEDOXOMIL) (TABLET) (HYDROCHLOROTHIAZIDE, OLMESARTAN MEDOXOMIL) [Concomitant]
  5. LUMIGAN (BIMATOPROST) [Concomitant]
  6. FISH OIL (FISH OIL) 1000 MILLIGRAM) [Concomitant]

REACTIONS (5)
  - Renal impairment [None]
  - Haemorrhoids [None]
  - Abdominal pain [None]
  - Large intestine polyp [None]
  - Tubulointerstitial nephritis [None]
